FAERS Safety Report 4529392-X (Version None)
Quarter: 2004Q4

REPORT INFORMATION
  Report Type: 
  Country: None (occurrence: None)
  Receive Date: 20041214
  Receipt Date: 20041130
  Transmission Date: 20050328
  Serious: Yes (Death)
  Sender: FDA-Public Use
  Company Number: 2004SE06654

PATIENT
  Age: 70 Year
  Sex: Female
  Weight: 70 kg

DRUGS (2)
  1. SEROQUEL [Suspect]
     Indication: PSYCHOTIC DISORDER
     Dosage: 100 MG DAILY PO
     Route: 048
     Dates: start: 20040901
  2. SEROQUEL [Suspect]
     Indication: PSYCHOTIC DISORDER
     Dosage: 200 MG DAILY PO
     Route: 048
     Dates: end: 20041112

REACTIONS (7)
  - ANOREXIA [None]
  - AZOTAEMIA [None]
  - CARDIAC DISORDER [None]
  - ELECTROLYTE IMBALANCE [None]
  - KETOACIDOSIS [None]
  - MYOCARDIAL INFARCTION [None]
  - SEDATION [None]
